FAERS Safety Report 5121446-2 (Version None)
Quarter: 2006Q4

REPORT INFORMATION
  Report Type: 
  Country: None (occurrence: None)
  Receive Date: 20061003
  Receipt Date: 20060920
  Transmission Date: 20070319
  Serious: Yes (Other)
  Sender: FDA-Public Use
  Company Number: 2006114350

PATIENT
  Age: 18 Year
  Sex: Male

DRUGS (1)
  1. GENOTROPIN [Suspect]
     Indication: GROWTH HORMONE DEFICIENCY
     Dosage: 1.6 MG (DAILY), SUBCUTANEOUS
     Route: 058

REACTIONS (2)
  - GERM CELL CANCER [None]
  - RECURRENT CANCER [None]
